FAERS Safety Report 25006911 (Version 1)
Quarter: 2025Q1

REPORT INFORMATION
  Report Type: Spontaneous
  Country: US (occurrence: US)
  Receive Date: 20250225
  Receipt Date: 20250225
  Transmission Date: 20250408
  Serious: Yes (Other)
  Sender: NOVO NORDISK
  Company Number: US-NOVOPROD-1373463

PATIENT
  Age: 70 Year
  Sex: Female

DRUGS (2)
  1. WEGOVY [Suspect]
     Active Substance: SEMAGLUTIDE
     Route: 058
     Dates: start: 20250201
  2. WEGOVY [Suspect]
     Active Substance: SEMAGLUTIDE
     Indication: Disease risk factor
     Dosage: 0.25 MG, QW(SATURDAY)
     Route: 058
     Dates: start: 20241109, end: 20241207

REACTIONS (4)
  - Benign neoplasm of thyroid gland [Unknown]
  - Peripheral swelling [Recovered/Resolved]
  - Peripheral swelling [Not Recovered/Not Resolved]
  - Product use in unapproved indication [Unknown]

NARRATIVE: CASE EVENT DATE: 20241101
